FAERS Safety Report 16250757 (Version 1)
Quarter: 2019Q2

REPORT INFORMATION
  Report Type: Spontaneous
  Country: US (occurrence: US)
  Receive Date: 20190426
  Receipt Date: 20190426
  Transmission Date: 20190711
  Serious: Yes (Hospitalization, Disabling)
  Sender: FDA-Public Use
  Company Number: None

PATIENT
  Age: 38 Year
  Sex: Female
  Weight: 58.5 kg

DRUGS (10)
  1. LEXAPRO [Concomitant]
     Active Substance: ESCITALOPRAM OXALATE
  2. MULTIVITAMIN [Concomitant]
     Active Substance: VITAMINS
  3. PLAQUENIL [Concomitant]
     Active Substance: HYDROXYCHLOROQUINE SULFATE
  4. CALCIUM [Concomitant]
     Active Substance: CALCIUM
  5. TURMERIC [Concomitant]
     Active Substance: HERBALS\TURMERIC
  6. BENLYSTA [Suspect]
     Active Substance: BELIMUMAB
     Indication: SYSTEMIC LUPUS ERYTHEMATOSUS
     Dosage: ?          QUANTITY:1 INJECTION(S);OTHER FREQUENCY:ONCE WEEKLY;?
     Route: 058
     Dates: start: 20171120, end: 20171127
  7. PREDNISONE. [Concomitant]
     Active Substance: PREDNISONE
  8. METHOTREXATE. [Concomitant]
     Active Substance: METHOTREXATE
  9. VITAMIN D [Concomitant]
     Active Substance: VITAMIN D NOS
  10. FISH OIL [Concomitant]
     Active Substance: FISH OIL

REACTIONS (5)
  - Inflammation [None]
  - Oedema peripheral [None]
  - Muscular weakness [None]
  - Myopathy [None]
  - CSF protein [None]

NARRATIVE: CASE EVENT DATE: 20171130
